FAERS Safety Report 5383235-3 (Version None)
Quarter: 2007Q3

REPORT INFORMATION
  Report Type: 
  Country: None (occurrence: None)
  Receive Date: 20070710
  Receipt Date: 20070702
  Transmission Date: 20080115
  Serious: Yes (Other)
  Sender: FDA-Public Use
  Company Number: US-PFIZER INC-2007054741

PATIENT
  Sex: Female

DRUGS (2)
  1. DETROL LA [Suspect]
  2. FLUOXETINE [Interacting]

REACTIONS (2)
  - CHEST PAIN [None]
  - DRUG INTERACTION [None]
